FAERS Safety Report 18539170 (Version 1)
Quarter: 2020Q4

REPORT INFORMATION
  Report Type: Spontaneous
  Country: ES (occurrence: ES)
  Receive Date: 20201124
  Receipt Date: 20201124
  Transmission Date: 20210114
  Serious: Yes (Other)
  Sender: FDA-Public Use
  Company Number: ES-SAMSUNG BIOEPIS-SB-2020-35035

PATIENT
  Age: 73 Year
  Sex: Male

DRUGS (1)
  1. BENEPALI [Suspect]
     Active Substance: ETANERCEPT
     Indication: RHEUMATOID ARTHRITIS
     Dosage: 50 MG EVERY FOUR WEEKS?FOUR PRE-FILLED SYRINGES
     Route: 058
     Dates: start: 20190207, end: 20200909

REACTIONS (2)
  - Adenocarcinoma pancreas [Recovering/Resolving]
  - Product use issue [Unknown]

NARRATIVE: CASE EVENT DATE: 20200916
